FAERS Safety Report 10244821 (Version 1)
Quarter: 2014Q1

REPORT INFORMATION
  Report Type: Spontaneous
  Country: US (occurrence: None)
  Receive Date: 20140306
  Receipt Date: 20140306
  Transmission Date: 20141002
  Serious: Yes (Hospitalization, Other)
  Sender: FDA-Public Use
  Company Number: 163-21880-13040867

PATIENT
  Age: 68 Year
  Sex: Male

DRUGS (14)
  1. REVLIMID [Suspect]
     Indication: PLASMA CELL MYELOMA
     Route: 048
     Dates: start: 20120706
  2. SALINE (UNKNOWN) [Concomitant]
  3. PHILLIPS MILK OF MAGNESIA (UNKNOWN) [Concomitant]
  4. CETIRIZINE (UNKNOWN) [Concomitant]
  5. PROTONIX (UNKNOWN) [Concomitant]
  6. ZOMETA (ZOLEDRONIC ACID) (UNKNOWN) [Concomitant]
  7. BACTRIM (UNKNOWN) [Concomitant]
  8. BABY ASPIRIN (ACETYLSALICYLIC ACID) (UNKNOWN) [Concomitant]
  9. ZOFRAN (ONDANSETRON HYDROCHLORIDE) (UNKNOWN) [Concomitant]
  10. ALBUTEROL (SALBUTAMOL) (UNKNOWN) [Concomitant]
  11. COLACE (DOCUSATE SODIUM) (UNKNOWN) [Concomitant]
  12. LEVEMIR (INSULIN DETEMIR) (UNKNOWN) [Concomitant]
  13. NOVOLOG (INSULIN ASPART) (UNKNOWN) [Concomitant]
  14. DEXAMETHASONE (UNKNOWN) [Concomitant]

REACTIONS (11)
  - Diarrhoea [None]
  - Fatigue [None]
  - Pneumonia [None]
  - Laboratory test abnormal [None]
  - Blood potassium decreased [None]
  - Blood magnesium decreased [None]
  - Nasopharyngitis [None]
  - Cough [None]
  - Dysgeusia [None]
  - Decreased appetite [None]
  - Blood calcium decreased [None]
